FAERS Safety Report 8591771-1 (Version None)
Quarter: 2012Q3

REPORT INFORMATION
  Report Type: 
  Country: None (occurrence: None)
  Receive Date: 20120814
  Receipt Date: 20120809
  Transmission Date: 20120928
  Serious: Yes (Hospitalization, Other)
  Sender: FDA-Public Use
  Company Number: PHEH2006US01766

PATIENT
  Sex: Male
  Weight: 42.63 kg

DRUGS (2)
  1. TRILEPTAL [Suspect]
     Indication: ATTENTION DEFICIT/HYPERACTIVITY DISORDER
     Dosage: 300 MG, QD
     Route: 048
     Dates: start: 20040201, end: 20040407
  2. CONCERTA [Concomitant]
     Indication: ATTENTION DEFICIT/HYPERACTIVITY DISORDER
     Dosage: 27 MG, QD
     Route: 048

REACTIONS (33)
  - DECREASED APPETITE [None]
  - WHITE BLOOD CELL COUNT INCREASED [None]
  - EPISTAXIS [None]
  - PAIN [None]
  - ORAL DISCHARGE [None]
  - ARTHRALGIA [None]
  - UPPER RESPIRATORY TRACT INFECTION [None]
  - RESPIRATORY DISTRESS [None]
  - DRY EYE [None]
  - KERATITIS [None]
  - IRIS ADHESIONS [None]
  - LIP SWELLING [None]
  - CONSTIPATION [None]
  - DERMATITIS CONTACT [None]
  - STEVENS-JOHNSON SYNDROME [None]
  - BIOPSY SKIN ABNORMAL [None]
  - SKIN EXFOLIATION [None]
  - PLATELET COUNT INCREASED [None]
  - LACERATION [None]
  - RASH MACULO-PAPULAR [None]
  - CHEILITIS [None]
  - PYREXIA [None]
  - JOINT SWELLING [None]
  - DIZZINESS [None]
  - RHINITIS ALLERGIC [None]
  - PRODUCTIVE COUGH [None]
  - RASH PRURITIC [None]
  - EYE SWELLING [None]
  - ANXIETY [None]
  - PHOTOPHOBIA [None]
  - VISION BLURRED [None]
  - HERPES ZOSTER [None]
  - SINUSITIS [None]
